FAERS Safety Report 9684673 (Version 1)
Quarter: 2013Q4

REPORT INFORMATION
  Report Type: Spontaneous
  Country: US (occurrence: US)
  Receive Date: 20131112
  Receipt Date: 20131112
  Transmission Date: 20140711
  Serious: Yes (Other)
  Sender: FDA-Public Use
  Company Number: US-ELI_LILLY_AND_COMPANY-US201311000795

PATIENT
  Age: 47 Year
  Sex: Female
  Weight: 68.2 kg

DRUGS (3)
  1. HUMALOG LISPRO [Suspect]
     Indication: PRODUCT USED FOR UNKNOWN INDICATION
     Dosage: UNK
     Route: 058
  2. LANTUS [Concomitant]
  3. LISINOPRIL [Concomitant]
     Dosage: 10 MG, UNK

REACTIONS (4)
  - Blood glucose increased [Unknown]
  - Nausea [Unknown]
  - Influenza [Unknown]
  - Infusion site pruritus [Unknown]
